FAERS Safety Report 22349311 (Version 1)
Quarter: 2023Q2

REPORT INFORMATION
  Report Type: Spontaneous
  Country: US (occurrence: None)
  Receive Date: 20230519
  Receipt Date: 20230519
  Transmission Date: 20230721
  Serious: No
  Sender: FDA-Public Use
  Company Number: None

PATIENT
  Age: 85 Year
  Sex: Female
  Weight: 66.32 kg

DRUGS (19)
  1. EVEROLIMUS [Suspect]
     Active Substance: EVEROLIMUS
     Indication: Neuroendocrine tumour
     Dosage: FREQUENCY : DAILY;?
     Route: 048
     Dates: start: 202303, end: 20230519
  2. ASPIRIN REGIMEN [Concomitant]
     Active Substance: ASPIRIN
  3. ATORVASTATIN [Concomitant]
  4. DONEPEZIL [Concomitant]
     Active Substance: DONEPEZIL
  5. FLUTICASONE [Concomitant]
  6. FUROSEMIDE [Concomitant]
     Active Substance: FUROSEMIDE
  7. GABAPENTIN [Concomitant]
     Active Substance: GABAPENTIN
  8. GEMTESA [Concomitant]
     Active Substance: VIBEGRON
  9. LOSARTAN [Concomitant]
  10. MEMANTINE [Concomitant]
  11. METOPROLOL [Concomitant]
     Active Substance: METOPROLOL
  12. MYRBETRIQ [Concomitant]
     Active Substance: MIRABEGRON
  13. NAPROXEN [Concomitant]
     Active Substance: NAPROXEN
  14. NITROFURANTOIN [Concomitant]
  15. NORCO [Concomitant]
     Active Substance: ACETAMINOPHEN\HYDROCODONE BITARTRATE
  16. PANTOPRAZOLE [Concomitant]
     Active Substance: PANTOPRAZOLE
  17. PREDNISONE [Concomitant]
     Active Substance: PREDNISONE
  18. TEMAZEPAM [Concomitant]
     Active Substance: TEMAZEPAM
  19. VITAMIN E [Concomitant]
     Active Substance: .ALPHA.-TOCOPHEROL

REACTIONS (1)
  - General physical health deterioration [None]
